FAERS Safety Report 11997657 (Version 1)
Quarter: 2016Q1

REPORT INFORMATION
  Report Type: Spontaneous
  Country: US (occurrence: None)
  Receive Date: 20160202
  Receipt Date: 20160202
  Transmission Date: 20160526
  Serious: Yes (Hospitalization)
  Sender: FDA-Public Use
  Company Number: None

PATIENT
  Age: 90 Year
  Sex: Male
  Weight: 59 kg

DRUGS (1)
  1. METRONIDAZOLE. [Suspect]
     Active Substance: METRONIDAZOLE
     Indication: DIVERTICULUM
     Route: 048
     Dates: start: 20150908, end: 20150924

REACTIONS (6)
  - Nausea [None]
  - Confusional state [None]
  - Toxicity to various agents [None]
  - Asthenia [None]
  - Failure to thrive [None]
  - Dysgeusia [None]

NARRATIVE: CASE EVENT DATE: 20150924
